FAERS Safety Report 10093983 (Version 1)
Quarter: 2014Q2

REPORT INFORMATION
  Report Type: Report from Study
  Country: AU (occurrence: AU)
  Receive Date: 20140421
  Receipt Date: 20140421
  Transmission Date: 20141212
  Serious: Yes (Hospitalization)
  Sender: FDA-Public Use
  Company Number: AU-BRISTOL-MYERS SQUIBB COMPANY-20628442

PATIENT
  Age: 73 Year
  Sex: Female

DRUGS (10)
  1. BYETTA [Suspect]
     Indication: TYPE 2 DIABETES MELLITUS
     Route: 058
     Dates: start: 20130917
  2. LASIX [Concomitant]
  3. COVERSYL [Concomitant]
  4. CRESTOR [Concomitant]
  5. PARACETAMOL [Concomitant]
  6. MAGNESIUM [Concomitant]
  7. SENSIPAR [Concomitant]
  8. BISOPROLOL [Concomitant]
  9. ASPIRIN [Concomitant]
  10. LANTUS [Concomitant]

REACTIONS (3)
  - Volvulus [Recovering/Resolving]
  - Vomiting [Recovered/Resolved]
  - Weight decreased [Unknown]
